FAERS Safety Report 7074407-0 (Version None)
Quarter: 2010Q4

REPORT INFORMATION
  Report Type: 
  Country: None (occurrence: None)
  Receive Date: 20101029
  Receipt Date: 20101020
  Transmission Date: 20110411
  Serious: Yes (Death, Life-Threatening)
  Sender: FDA-Public Use
  Company Number: GXKR2010FR11867

PATIENT
  Age: 40 Year
  Sex: Female

DRUGS (2)
  1. BETAXOLOL (NGX) [Suspect]
     Dosage: 400 MG, UNK
     Route: 065
  2. FLECAINIDE (NGX) [Suspect]
     Dosage: 12000 MG, UNK
     Route: 065

REACTIONS (12)
  - ANURIA [None]
  - BRADYCARDIA [None]
  - BRAIN DEATH [None]
  - CARDIAC ARREST [None]
  - CARDIOGENIC SHOCK [None]
  - EXTRACORPOREAL SHOCK WAVE THERAPY [None]
  - HYPOKINESIA [None]
  - LOSS OF CONSCIOUSNESS [None]
  - MULTI-ORGAN FAILURE [None]
  - OVERDOSE [None]
  - PULMONARY HAEMORRHAGE [None]
  - RESUSCITATION [None]
